FAERS Safety Report 9281888 (Version 8)
Quarter: 2017Q2

REPORT INFORMATION
  Report Type: Report from Study
  Country: BR (occurrence: BR)
  Receive Date: 20130510
  Receipt Date: 20170413
  Transmission Date: 20170830
  Serious: Yes (Hospitalization, Other)
  Sender: FDA-Public Use
  Company Number: BR-ROCHE-1173872

PATIENT
  Age: 52 Year
  Sex: Female
  Weight: 49 kg

DRUGS (9)
  1. MABTHERA [Suspect]
     Active Substance: RITUXIMAB
     Route: 065
     Dates: start: 20130308
  2. ARAVA [Suspect]
     Active Substance: LEFLUNOMIDE
     Indication: PRODUCT USED FOR UNKNOWN INDICATION
     Route: 065
  3. METHOTREXATE. [Suspect]
     Active Substance: METHOTREXATE
     Indication: PRODUCT USED FOR UNKNOWN INDICATION
     Route: 065
  4. ANGIPRESS CD [Concomitant]
     Active Substance: ATENOLOL\CHLORTHALIDONE
     Dosage: HALF A TABLET
     Route: 065
  5. ARAVA [Concomitant]
     Active Substance: LEFLUNOMIDE
     Indication: RHEUMATOID ARTHRITIS
  6. CORTISONE [Concomitant]
     Active Substance: CORTISONE\HYDROCORTISONE
     Route: 065
  7. ACTEMRA [Suspect]
     Active Substance: TOCILIZUMAB
     Indication: RHEUMATOID ARTHRITIS
     Route: 042
     Dates: start: 20120119, end: 20121112
  8. MABTHERA [Suspect]
     Active Substance: RITUXIMAB
     Indication: RHEUMATOID ARTHRITIS
     Route: 065
     Dates: start: 20130220
  9. CORUS H [Concomitant]
     Active Substance: HYDROCHLOROTHIAZIDE\LOSARTAN POTASSIUM
     Dosage: HALF A TABLET
     Route: 065

REACTIONS (29)
  - Haematocrit decreased [Unknown]
  - White blood cell count decreased [Recovered/Resolved]
  - Conjunctivitis [Recovering/Resolving]
  - Syncope [Unknown]
  - Pyrexia [Unknown]
  - Dysuria [Unknown]
  - Alanine aminotransferase increased [Unknown]
  - Blood cholesterol abnormal [Unknown]
  - Pneumonia [Recovered/Resolved]
  - Bone marrow toxicity [Unknown]
  - Red blood cell count decreased [Unknown]
  - Haemoglobin decreased [Unknown]
  - Agranulocytosis [Recovered/Resolved]
  - Platelet count decreased [Recovered/Resolved]
  - Dizziness [Unknown]
  - Depressed mood [Unknown]
  - Sinusitis [Unknown]
  - Cough [Unknown]
  - Aspartate aminotransferase increased [Unknown]
  - Cold sweat [Unknown]
  - Pancytopenia [Recovered/Resolved]
  - Immunodeficiency [Unknown]
  - Herpes virus infection [Recovering/Resolving]
  - Urinary tract infection [Not Recovered/Not Resolved]
  - Hypertension [Unknown]
  - Asthenia [Unknown]
  - Rheumatoid arthritis [Recovered/Resolved]
  - Blood cholesterol abnormal [Unknown]
  - Blood urea increased [Unknown]

NARRATIVE: CASE EVENT DATE: 201209
